FAERS Safety Report 7486356-4 (Version None)
Quarter: 2011Q2

REPORT INFORMATION
  Report Type: 
  Country: None (occurrence: None)
  Receive Date: 20110517
  Receipt Date: 20110512
  Transmission Date: 20111010
  Serious: Yes (Hospitalization)
  Sender: FDA-Public Use
  Company Number: GXKR2011DE01691

PATIENT
  Age: 46 Year
  Sex: Male

DRUGS (7)
  1. KEPPRA [Concomitant]
     Dates: start: 20080901
  2. CITALOPRAM HYDROBROMIDE [Suspect]
     Dosage: 40 MG, UNK
     Dates: start: 20100601
  3. ERGENYL CHRONO [Concomitant]
     Dates: start: 20091101
  4. BOTULINUM TOXIN TYPE A [Suspect]
     Route: 065
     Dates: start: 20090101
  5. GABAPENTIN [Concomitant]
     Dates: start: 20080101, end: 20080901
  6. CARBAMAZEPINE [Suspect]
     Dates: start: 20100801
  7. MIRTAZAPINE [Concomitant]
     Dosage: 30 MG/DAY
     Dates: start: 20091101, end: 20100201

REACTIONS (3)
  - MEMORY IMPAIRMENT [None]
  - MYOCLONUS [None]
  - AMNESTIC DISORDER [None]
